FAERS Safety Report 9619689 (Version 1)
Quarter: 2013Q4

REPORT INFORMATION
  Report Type: Spontaneous
  Country: MX (occurrence: MX)
  Receive Date: 20131014
  Receipt Date: 20131014
  Transmission Date: 20140711
  Serious: Yes (Other)
  Sender: FDA-Public Use
  Company Number: MX-PFIZER INC-2013293557

PATIENT
  Sex: Female

DRUGS (1)
  1. PRISTIQ [Suspect]

REACTIONS (3)
  - Drug withdrawal syndrome [Unknown]
  - Drug dependence [Unknown]
  - Anxiety [Unknown]
